FAERS Safety Report 23975261 (Version 1)
Quarter: 2024Q2

REPORT INFORMATION
  Report Type: Report from Study
  Country: PE (occurrence: PE)
  Receive Date: 20240614
  Receipt Date: 20240614
  Transmission Date: 20240716
  Serious: Yes (Other)
  Sender: FDA-Public Use
  Company Number: PE-UCBSA-2024028829

PATIENT
  Age: 32 Year
  Sex: Male

DRUGS (2)
  1. CERTOLIZUMAB PEGOL [Suspect]
     Active Substance: CERTOLIZUMAB PEGOL
     Indication: Rheumatoid arthritis
     Dosage: 400 MILLIGRAM, EV 30 DAYS
     Route: 058
     Dates: start: 20230522, end: 20240429
  2. DICLOXACILLIN [Concomitant]
     Active Substance: DICLOXACILLIN
     Indication: Bronchitis
     Dosage: UNK
     Dates: start: 202405

REACTIONS (3)
  - Colitis [Not Recovered/Not Resolved]
  - Bronchitis [Recovered/Resolved]
  - Abdominal pain upper [Not Recovered/Not Resolved]

NARRATIVE: CASE EVENT DATE: 20240501
